FAERS Safety Report 9860841 (Version 1)
Quarter: 2014Q1

REPORT INFORMATION
  Report Type: Spontaneous
  Country: SG (occurrence: None)
  Receive Date: 20140130
  Receipt Date: 20140130
  Transmission Date: 20141002
  Serious: Yes (Hospitalization)
  Sender: FDA-Public Use
  Company Number: FK201400262

PATIENT
  Age: 54 Year
  Sex: Male

DRUGS (3)
  1. METHOTREXATE [Suspect]
     Indication: PSORIASIS
     Dosage: 1 IN 1 WK
     Dates: start: 201108
  2. LITHIUM [Suspect]
     Indication: BIPOLAR DISORDER
  3. FOLIC ACID (FOLIC ACID) [Concomitant]

REACTIONS (5)
  - Mania [None]
  - Treatment noncompliance [None]
  - Hypothyroidism [None]
  - Psoriasis [None]
  - Stress [None]
